FAERS Safety Report 24906639 (Version 1)
Quarter: 2025Q1

REPORT INFORMATION
  Report Type: Other
  Country: US (occurrence: US)
  Receive Date: 20250130
  Receipt Date: 20250130
  Transmission Date: 20250408
  Serious: Yes (Hospitalization, Other)
  Sender: B BRAUN
  Company Number: US-B.Braun Medical Inc.-2170167

PATIENT
  Age: 82 Year
  Sex: Male

DRUGS (1)
  1. HEPARIN SODIUM IN DEXTROSE [Suspect]
     Active Substance: HEPARIN SODIUM
     Indication: Surgery

REACTIONS (1)
  - Drug ineffective [Recovered/Resolved]
